FAERS Safety Report 7917971-9 (Version None)
Quarter: 2011Q4

REPORT INFORMATION
  Report Type: 
  Country: None (occurrence: None)
  Receive Date: 20111116
  Receipt Date: 20111114
  Transmission Date: 20120403
  Serious: Yes (Other)
  Sender: FDA-Public Use
  Company Number: PHHY2011NL100152

PATIENT
  Sex: Male

DRUGS (2)
  1. ZOMETA [Suspect]
     Dosage: 4 MG/ 5 ML
     Dates: start: 20111027
  2. ZOMETA [Suspect]
     Indication: PROSTATE CANCER
     Dosage: 4 MG/ 5 ML

REACTIONS (1)
  - TERMINAL STATE [None]
